FAERS Safety Report 4363657-X (Version None)
Quarter: 2004Q2

REPORT INFORMATION
  Report Type: 
  Country: None (occurrence: None)
  Receive Date: 20040517
  Receipt Date: 20040415
  Transmission Date: 20050107
  Serious: No
  Sender: FDA-Public Use
  Company Number: S04-USA-02112-01

PATIENT
  Age: 92 Year
  Sex: Female

DRUGS (3)
  1. NAMENDA [Suspect]
     Indication: DEMENTIA ALZHEIMER'S TYPE
     Dosage: 5 MG QD PO
     Route: 048
     Dates: start: 20040410
  2. PREDNISONE [Concomitant]
  3. TOPROL-XL [Concomitant]

REACTIONS (4)
  - CONFUSIONAL STATE [None]
  - COUGH [None]
  - SPEECH DISORDER [None]
  - TREMOR [None]
